FAERS Safety Report 17488886 (Version 1)
Quarter: 2020Q1

REPORT INFORMATION
  Report Type: Spontaneous
  Country: US (occurrence: US)
  Receive Date: 20200303
  Receipt Date: 20200303
  Transmission Date: 20200409
  Serious: Yes (Hospitalization)
  Sender: FDA-Public Use
  Company Number: None

PATIENT
  Sex: Male

DRUGS (4)
  1. PIROXICAM. [Concomitant]
     Active Substance: PIROXICAM
  2. ASPIRIN. [Concomitant]
     Active Substance: ASPIRIN
  3. DOK CAP 100MG [Concomitant]
  4. COSENTYX [Suspect]
     Active Substance: SECUKINUMAB
     Indication: ANKYLOSING SPONDYLITIS
     Dosage: ?          OTHER FREQUENCY:EVERY 4 WEEKS;?
     Route: 058
     Dates: start: 20191108

REACTIONS (1)
  - Therapy cessation [None]
